FAERS Safety Report 4268068-3 (Version None)
Quarter: 2004Q1

REPORT INFORMATION
  Report Type: 
  Country: None (occurrence: None)
  Receive Date: 20040109
  Receipt Date: 20040109
  Transmission Date: 20041129
  Serious: Yes (Hospitalization)
  Sender: FDA-Public Use
  Company Number: None

PATIENT
  Age: 77 Year
  Sex: Female
  Weight: 91.173 kg

DRUGS (1)
  1. GEMCITABINE 1000MG/M2 [Suspect]
     Indication: PANCREATIC CARCINOMA
     Dosage: 2170 MG QWK FOR 3 WKS IV
     Route: 042
     Dates: start: 20031117, end: 20031229

REACTIONS (3)
  - BACK PAIN [None]
  - CONSTIPATION [None]
  - MUSCLE STRAIN [None]
